FAERS Safety Report 8303475 (Version 22)
Quarter: 2020Q2

REPORT INFORMATION
  Report Type: Report from Study
  Country: CA (occurrence: CA)
  Receive Date: 20111220
  Receipt Date: 20200419
  Transmission Date: 20200714
  Serious: Yes (Other)
  Sender: FDA-Public Use
  Company Number: PHHY2011CA45857

PATIENT
  Age: 43 Year
  Sex: Female

DRUGS (14)
  1. SANDOSTATIN LAR DEPOT [Suspect]
     Active Substance: OCTREOTIDE ACETATE
     Dosage: 30 MG, Q4W
     Route: 030
     Dates: start: 20190919
  2. SANDOSTATIN LAR DEPOT [Suspect]
     Active Substance: OCTREOTIDE ACETATE
     Dosage: 30 MG, QMO, EVERY 4 WEEKS
     Route: 030
     Dates: start: 201111
  3. COUMADINE [Concomitant]
     Active Substance: WARFARIN SODIUM
     Dosage: 20 MG, QW (ONCE PER WEEK)
     Route: 048
  4. COUMADINE [Concomitant]
     Active Substance: WARFARIN SODIUM
     Indication: PRODUCT USED FOR UNKNOWN INDICATION
     Dosage: 18 MG, UNK
     Route: 048
  5. DILANTIN [Concomitant]
     Active Substance: PHENYTOIN
     Indication: PRODUCT USED FOR UNKNOWN INDICATION
     Dosage: 400 MG, QD
     Route: 048
  6. CORTEF [Concomitant]
     Active Substance: HYDROCORTISONE
     Dosage: 5 UNK
     Route: 065
  7. SANDOSTATIN LAR DEPOT [Suspect]
     Active Substance: OCTREOTIDE ACETATE
     Dosage: 20 MG, QMO, EVERY 4 WEEKS
     Route: 030
  8. DOSTINEX [Concomitant]
     Active Substance: CABERGOLINE
     Indication: PRODUCT USED FOR UNKNOWN INDICATION
     Dosage: UNK, OTHER
     Route: 065
  9. COUMADINE [Concomitant]
     Active Substance: WARFARIN SODIUM
     Dosage: 15 MG, (6 DAYS PER WEEK)
     Route: 048
  10. CORTEF [Concomitant]
     Active Substance: HYDROCORTISONE
     Indication: PRODUCT USED FOR UNKNOWN INDICATION
     Dosage: 10 MG, UNKNOWN
     Route: 065
  11. SANDOSTATIN LAR DEPOT [Suspect]
     Active Substance: OCTREOTIDE ACETATE
     Dosage: 30 MG, Q4W
     Route: 030
     Dates: start: 20080605
  12. SANDOSTATIN LAR DEPOT [Suspect]
     Active Substance: OCTREOTIDE ACETATE
     Dosage: 20 MG, QMO, EVERY 4 WEEKS
     Route: 030
     Dates: start: 20150716
  13. SANDOSTATIN LAR DEPOT [Suspect]
     Active Substance: OCTREOTIDE ACETATE
     Indication: ACROMEGALY
     Dosage: 20 MG, QMO, EVERY 4 WEEKS
     Route: 030
     Dates: start: 20080605
  14. COVERSYL [Concomitant]
     Active Substance: PERINDOPRIL
     Indication: BLOOD PRESSURE ABNORMAL
     Dosage: 4 MG, QD
     Route: 048

REACTIONS (37)
  - Ligament sprain [Unknown]
  - Blood pressure systolic increased [Unknown]
  - Nausea [Unknown]
  - Injection site erythema [Unknown]
  - Injection site pruritus [Recovering/Resolving]
  - Decreased appetite [Unknown]
  - Injection site pain [Unknown]
  - Hypothyroidism [Unknown]
  - Burning sensation [Unknown]
  - Malaise [Unknown]
  - Groin pain [Recovered/Resolved]
  - Insulin-like growth factor increased [Unknown]
  - Injection site bruising [Unknown]
  - Pain in extremity [Not Recovered/Not Resolved]
  - Menorrhagia [Unknown]
  - Amenorrhoea [Unknown]
  - Hypoaesthesia [Unknown]
  - Flatulence [Unknown]
  - Injury [Unknown]
  - Adrenal disorder [Unknown]
  - Anal abscess [Not Recovered/Not Resolved]
  - Hyperprolactinaemia [Unknown]
  - Hepatic pain [Unknown]
  - Influenza [Unknown]
  - Fall [Recovered/Resolved]
  - Injection site mass [Unknown]
  - Fatigue [Unknown]
  - Abdominal pain upper [Unknown]
  - Diarrhoea [Unknown]
  - Constipation [Unknown]
  - Anal fistula [Unknown]
  - Postoperative wound infection [Unknown]
  - Cough [Unknown]
  - Back pain [Unknown]
  - Accident at work [Unknown]
  - Abdominal discomfort [Unknown]
  - Injection site haemorrhage [Recovered/Resolved]

NARRATIVE: CASE EVENT DATE: 201002
